FAERS Safety Report 7457335-8 (Version None)
Quarter: 2011Q1

REPORT INFORMATION
  Report Type: 
  Country: None (occurrence: None)
  Receive Date: 20110302
  Receipt Date: 20101103
  Transmission Date: 20110831
  Serious: No
  Sender: FDA-Public Use
  Company Number: 021523

PATIENT
  Sex: Female
  Weight: 54.4 kg

DRUGS (6)
  1. ISONIAZID [Suspect]
     Indication: TUBERCULOSIS
     Dosage: (300 MG ORAL)
     Route: 048
     Dates: start: 20100101
  2. IMURAN [Concomitant]
  3. ARAVA [Concomitant]
  4. PREDNISONE [Concomitant]
  5. ZOLOFT [Concomitant]
  6. CIMZIA [Suspect]
     Indication: RHEUMATOID ARTHRITIS
     Dosage: (200 MG 1X/2 WEEKS SUBCUTANEOUS)
     Route: 058
     Dates: start: 20100101

REACTIONS (1)
  - CONTUSION [None]
